FAERS Safety Report 5073290-2 (Version None)
Quarter: 2006Q3

REPORT INFORMATION
  Report Type: 
  Country: None (occurrence: None)
  Receive Date: 20060802
  Receipt Date: 20060720
  Transmission Date: 20061208
  Serious: Yes (Hospitalization, Other)
  Sender: FDA-Public Use
  Company Number: 2006091479

PATIENT
  Age: 42 Year
  Sex: Male
  Weight: 88.4514 kg

DRUGS (1)
  1. BEXTRA [Suspect]
     Indication: DRUG USE FOR UNKNOWN INDICATION
     Dosage: 20 MG, ORAL
     Route: 048

REACTIONS (5)
  - ARTERIOSCLEROSIS [None]
  - MOBILITY DECREASED [None]
  - PAIN [None]
  - PAIN IN EXTREMITY [None]
  - THROMBOSIS [None]
